FAERS Safety Report 8895071 (Version 2)
Quarter: 2012Q4

REPORT INFORMATION
  Report Type: 
  Country: US (occurrence: US)
  Receive Date: 20121108
  Receipt Date: 20121206
  Transmission Date: 20130627
  Serious: Yes (Other)
  Sender: FDA-Public Use
  Company Number: CHPA2012US023044

PATIENT
  Age: 87 Year
  Sex: Female

DRUGS (2)
  1. MAALOX [Suspect]
     Indication: FLATULENCE
     Dosage: 1 TSP, PRN
     Route: 048
  2. MAALOX [Suspect]
     Dosage: 1 TSP, PRN

REACTIONS (5)
  - Cardiac valve disease [Recovered/Resolved]
  - Nephrolithiasis [Not Recovered/Not Resolved]
  - Blood potassium increased [Recovered/Resolved]
  - Underdose [Unknown]
  - Expired drug administered [Unknown]
